FAERS Safety Report 15146726 (Version 4)
Quarter: 2018Q3

REPORT INFORMATION
  Report Type: Report from Study
  Country: DK (occurrence: DK)
  Receive Date: 20180716
  Receipt Date: 20180816
  Transmission Date: 20181010
  Serious: Yes (Death, Disabling, Other)
  Sender: FDA-Public Use
  Company Number: DK-AMGEN-DNKNI2016115396

PATIENT
  Age: 64 Year
  Sex: Female
  Weight: 80 kg

DRUGS (1)
  1. ETANERCEPT [Suspect]
     Active Substance: ETANERCEPT
     Indication: ANKYLOSING SPONDYLITIS
     Dosage: 50 MG, QWK
     Route: 058
     Dates: start: 20071022, end: 20151208

REACTIONS (12)
  - Tic [Recovering/Resolving]
  - Fatigue [Recovering/Resolving]
  - Multiple sclerosis [Recovering/Resolving]
  - Sensory disturbance [Recovering/Resolving]
  - Eyelid ptosis [Unknown]
  - Sensory disturbance [Unknown]
  - Speech disorder [Recovering/Resolving]
  - Tongue paralysis [Unknown]
  - Movement disorder [Unknown]
  - Dizziness [Recovering/Resolving]
  - Gait disturbance [Recovering/Resolving]
  - Balance disorder [Recovering/Resolving]

NARRATIVE: CASE EVENT DATE: 2015
